FAERS Safety Report 4496574-5 (Version None)
Quarter: 2004Q3

REPORT INFORMATION
  Report Type: 
  Country: None (occurrence: None)
  Receive Date: 20040923
  Receipt Date: 20040628
  Transmission Date: 20050211
  Serious: Yes (Other)
  Sender: FDA-Public Use
  Company Number: 2004043345

PATIENT
  Sex: Female

DRUGS (1)
  1. ZYRTEC [Suspect]
     Indication: HYPERSENSITIVITY
     Dosage: (DAILY INTERVAL:   EVERY DAY), ORAL
     Route: 048
     Dates: end: 20040101

REACTIONS (4)
  - ANAPHYLACTIC REACTION [None]
  - CONDITION AGGRAVATED [None]
  - DYSGEUSIA [None]
  - HYPERSENSITIVITY [None]
